FAERS Safety Report 4318576-1 (Version None)
Quarter: 2004Q1

REPORT INFORMATION
  Report Type: 
  Country: None (occurrence: None)
  Receive Date: 20040316
  Receipt Date: 20040316
  Transmission Date: 20041129
  Serious: Yes (Other)
  Sender: FDA-Public Use
  Company Number: None

PATIENT
  Age: 38 Year
  Sex: Male
  Weight: 75.5 kg

DRUGS (1)
  1. ISOVUE-300 [Suspect]
     Dosage: 130 MG IV
     Route: 042
     Dates: start: 20040202

REACTIONS (4)
  - DYSPHAGIA [None]
  - HEART RATE DECREASED [None]
  - THROAT IRRITATION [None]
  - URTICARIA [None]
